FAERS Safety Report 15727175 (Version 1)
Quarter: 2018Q4

REPORT INFORMATION
  Report Type: Report from Study
  Country: US (occurrence: US)
  Receive Date: 20181217
  Receipt Date: 20181217
  Transmission Date: 20190205
  Serious: Yes (Other)
  Sender: FDA-Public Use
  Company Number: US-ROCHE-2228011

PATIENT
  Sex: Female

DRUGS (2)
  1. TENOFOVIR [Suspect]
     Active Substance: TENOFOVIR
     Indication: CHRONIC HEPATITIS B
     Route: 048
  2. PEG-INTERFERON ALFA 2A [Suspect]
     Active Substance: PEGINTERFERON ALFA-2A
     Indication: CHRONIC HEPATITIS B
     Route: 058

REACTIONS (3)
  - Intraductal proliferative breast lesion [Unknown]
  - Invasive ductal breast carcinoma [Not Recovered/Not Resolved]
  - Breast calcifications [Unknown]

NARRATIVE: CASE EVENT DATE: 20160606
